FAERS Safety Report 9277045 (Version 2)
Quarter: 2013Q2

REPORT INFORMATION
  Report Type: Spontaneous
  Country: NL (occurrence: None)
  Receive Date: 20130501
  Receipt Date: 20130531
  Transmission Date: 20140414
  Serious: Yes (Other)
  Sender: FDA-Public Use
  Company Number: 2013000104

PATIENT
  Age: 86 Year
  Sex: Male

DRUGS (5)
  1. ACEON (PERINDOPRIL ERBUMINE) TABLET, 2MG [Suspect]
     Indication: CARDIAC DISORDER
     Route: 048
     Dates: start: 20120706
  2. LUCRIN DEPOT [Suspect]
     Indication: CARDIAC DISORDER
     Dosage: 1 PER 3 MONTHS, 1 DF PER QARTER.
     Dates: start: 20120404
  3. SIMVASTATIN (SIMVASTATIN) [Suspect]
     Indication: PRODUCT USED FOR UNKNOWN INDICATION
     Route: 048
     Dates: start: 200703, end: 20130110
  4. ACETYLSALICYLZUUR (ACETYLSALICYLIC ACID) [Concomitant]
  5. OMEPRAZOL (OMEPRAZOLE) [Concomitant]

REACTIONS (1)
  - Tendon rupture [None]
